FAERS Safety Report 11005046 (Version 2)
Quarter: 2015Q3

REPORT INFORMATION
  Report Type: Spontaneous
  Country: US (occurrence: US)
  Receive Date: 20150409
  Receipt Date: 20150715
  Transmission Date: 20151125
  Serious: No
  Sender: FDA-Public Use
  Company Number: US-PFIZER INC-2015117827

PATIENT
  Age: 37 Year
  Sex: Female
  Weight: 51 kg

DRUGS (2)
  1. MORPHINE SULFATE. [Suspect]
     Active Substance: MORPHINE SULFATE
     Dosage: UNK
  2. CEFADROXIL ^BIOCHEMIE^ [Suspect]
     Active Substance: CEFADROXIL

REACTIONS (2)
  - Tachycardia [Unknown]
  - Drug hypersensitivity [Unknown]
